FAERS Safety Report 9109911 (Version 6)
Quarter: 2014Q1

REPORT INFORMATION
  Report Type: Spontaneous
  Country: US (occurrence: US)
  Receive Date: 20130222
  Receipt Date: 20140110
  Transmission Date: 20141002
  Serious: No
  Sender: FDA-Public Use
  Company Number: US-009507513-1302USA010058

PATIENT
  Age: 61 Year
  Sex: Male
  Weight: 68.48 kg

DRUGS (9)
  1. PEG-INTRON [Suspect]
     Indication: HEPATITIS C
     Dosage: 120 MICROGRAM REDIPEN, QW
     Dates: start: 20130206, end: 20130416
  2. PEG-INTRON [Suspect]
     Dosage: DECREASED FROM 0.5 TO 0.4 ML, ONCE A WEEK
     Route: 058
     Dates: start: 20130417, end: 20140101
  3. REBETOL [Suspect]
     Indication: HEPATITIS C
     Dosage: 600 MG, QAM
     Route: 048
     Dates: start: 20130206, end: 20140108
  4. REBETOL [Suspect]
     Dosage: 400 MG, QPM
     Route: 048
     Dates: start: 20130206, end: 20130402
  5. REBETOL [Suspect]
     Dosage: 400 MG, QPM
     Route: 048
     Dates: start: 20130403, end: 20140108
  6. VICTRELIS [Suspect]
     Indication: HEPATITIS C
     Dosage: 800 MG, Q8H
     Route: 048
     Dates: start: 20130307, end: 20130821
  7. PRINIVIL [Concomitant]
     Dosage: 40 MG, QD
     Route: 048
  8. NEXIUM [Concomitant]
     Dosage: 40 MG, QD
     Route: 048
  9. IBUPROFEN [Concomitant]
     Dosage: 800 MG, PRN

REACTIONS (14)
  - Anaemia [Recovering/Resolving]
  - Pain [Unknown]
  - Dysgeusia [Unknown]
  - Disturbance in attention [Unknown]
  - Injection site reaction [Recovered/Resolved]
  - Fatigue [Unknown]
  - Myalgia [Unknown]
  - Haemoglobin decreased [Recovering/Resolving]
  - Fatigue [Unknown]
  - Nausea [Unknown]
  - Fatigue [Unknown]
  - Fatigue [Unknown]
  - Blood disorder [Unknown]
  - Anaemia [Unknown]
